FAERS Safety Report 5335193-5 (Version None)
Quarter: 2007Q2

REPORT INFORMATION
  Report Type: 
  Country: None (occurrence: None)
  Receive Date: 20070525
  Receipt Date: 20070516
  Transmission Date: 20071010
  Serious: Yes (Other)
  Sender: FDA-Public Use
  Company Number: JP-PFIZER INC-2007030892

PATIENT
  Sex: Male
  Weight: 52 kg

DRUGS (8)
  1. SOLU-MEDROL [Suspect]
     Indication: JUVENILE ARTHRITIS
     Dosage: DAILY DOSE:1GRAM
     Route: 042
     Dates: start: 20030613, end: 20070412
  2. SOLU-MEDROL [Suspect]
  3. BRUFEN [Suspect]
     Indication: JUVENILE ARTHRITIS
     Dosage: DAILY DOSE:1200MG
     Route: 048
     Dates: start: 20070405, end: 20070413
  4. ALL OTHER THERAPEUTIC PRODUCTS [Concomitant]
  5. PANSPORIN [Concomitant]
     Route: 042
     Dates: start: 20070405, end: 20070409
  6. PREDONINE [Concomitant]
     Route: 048
     Dates: start: 20070405, end: 20070409
  7. MUCOSTA [Concomitant]
     Route: 048
     Dates: start: 20070405
  8. DALTEPARIN SODIUM [Concomitant]
     Route: 042
     Dates: start: 20070410, end: 20070413

REACTIONS (3)
  - HEPATIC FAILURE [None]
  - LIVER DISORDER [None]
  - TRANSAMINASES INCREASED [None]
